FAERS Safety Report 7679757-2 (Version None)
Quarter: 2011Q3

REPORT INFORMATION
  Report Type: 
  Country: None (occurrence: None)
  Receive Date: 20110812
  Receipt Date: 20110303
  Transmission Date: 20111222
  Serious: Yes (Hospitalization, Other)
  Sender: FDA-Public Use
  Company Number: US-BAYER-201025798NA

PATIENT
  Age: 48 Year
  Sex: Female

DRUGS (21)
  1. ACETAMINOPHEN W/ PROPOXYPHENE HCL [Concomitant]
  2. SERTRALINE HYDROCHLORIDE [Concomitant]
  3. MUCINEX [Concomitant]
     Indication: PNEUMONIA
     Dates: start: 20090116
  4. CYCLOBENZAPRINE [Concomitant]
  5. BACTRIM [Concomitant]
     Dates: end: 20090201
  6. LEVOTHYROXINE SODIUM [Concomitant]
  7. FEXOFENADINE [Concomitant]
  8. ZOLPIDEM [Concomitant]
  9. SULFAMETHOXAZOLE AND TRIMETHOPRIM [Concomitant]
     Dates: start: 20080728
  10. PROGRAF [Concomitant]
  11. ACETAMINOPHEN [Suspect]
     Indication: PRODUCT USED FOR UNKNOWN INDICATION
     Dates: start: 20090101, end: 20090123
  12. ASMANEX TWISTHALER [Concomitant]
  13. SIMVASTATIN [Concomitant]
     Dates: end: 20090123
  14. AVELOX [Suspect]
     Indication: PNEUMONIA
     Dosage: 400 MG (DAILY DOSE), OM, ORAL
     Route: 048
     Dates: start: 20090116, end: 20090123
  15. ALPRAZOLAM [Concomitant]
  16. HYDROCHLOROTHIAZIDE [Concomitant]
  17. NASONEX [Concomitant]
  18. PREVACID [Concomitant]
  19. MUCOMYST [Concomitant]
  20. PROGRAF [Concomitant]
     Dosage: DOSE REDUCED
     Dates: start: 20090201
  21. CELLCEPT [Concomitant]

REACTIONS (21)
  - ACUTE HEPATIC FAILURE [None]
  - CONFUSIONAL STATE [None]
  - ABDOMINAL WALL ABSCESS [None]
  - BACK PAIN [None]
  - SOMNOLENCE [None]
  - URINE OUTPUT DECREASED [None]
  - DIARRHOEA [None]
  - PRURITUS [None]
  - FATIGUE [None]
  - KIDNEY INFECTION [None]
  - ASTHENIA [None]
  - TRANSPLANT FAILURE [None]
  - ENCEPHALOPATHY [None]
  - FUNGAL SKIN INFECTION [None]
  - CHOLESTASIS [None]
  - JAUNDICE [None]
  - OCULAR ICTERUS [None]
  - CHROMATURIA [None]
  - COAGULOPATHY [None]
  - RENAL FAILURE [None]
  - PAIN [None]
